FAERS Safety Report 11224681 (Version 1)
Quarter: 2015Q2

REPORT INFORMATION
  Report Type: Spontaneous
  Country: US (occurrence: US)
  Receive Date: 20150629
  Receipt Date: 20150629
  Transmission Date: 20150821
  Serious: Yes (Death)
  Sender: FDA-Public Use
  Company Number: US-PFIZER INC-2015211470

PATIENT
  Age: 74 Year
  Sex: Male
  Weight: 86 kg

DRUGS (4)
  1. CIPRO [Concomitant]
     Active Substance: CIPROFLOXACIN HYDROCHLORIDE
     Indication: SKIN LESION
     Dosage: 500 MG (ONE TABLET), 2X/DAY
  2. TYLENOL [Concomitant]
     Active Substance: ACETAMINOPHEN
     Dosage: 600 MG ONE TABLET EVERY 4-6 HOURS, AS NEEDED
  3. TORISEL [Suspect]
     Active Substance: TEMSIROLIMUS
     Indication: B-CELL LYMPHOMA
     Dosage: 25 MG IV INFUSION, EVERY 3 WEEKS
     Route: 041
     Dates: start: 20150306, end: 20150410
  4. REMERON [Concomitant]
     Active Substance: MIRTAZAPINE
     Dosage: 15 MG(ONE TABLET), DAILY BEFORE BEDTIME

REACTIONS (3)
  - B-cell lymphoma [Fatal]
  - Disease progression [Fatal]
  - Product use issue [Unknown]

NARRATIVE: CASE EVENT DATE: 2015
